FAERS Safety Report 7355575-X (Version None)
Quarter: 2011Q1

REPORT INFORMATION
  Report Type: 
  Country: None (occurrence: None)
  Receive Date: 20110316
  Receipt Date: 20110310
  Transmission Date: 20110831
  Serious: Yes (Life-Threatening)
  Sender: FDA-Public Use
  Company Number: B0695256A

PATIENT
  Age: 43 Year
  Sex: Female

DRUGS (5)
  1. EPOPROSTENOL SODIUM [Suspect]
     Route: 042
     Dates: start: 20080401
  2. TRACLEER [Concomitant]
     Indication: PULMONARY ARTERIAL PRESSURE DECREASED
     Dosage: 187.5MG PER DAY
     Route: 048
     Dates: start: 20070628
  3. DIART [Concomitant]
     Indication: POLYURIA
     Dosage: 60MG PER DAY
     Route: 048
     Dates: start: 20070627
  4. ALDACTONE [Concomitant]
     Indication: POLYURIA
     Dosage: 50MG PER DAY
     Route: 048
     Dates: start: 20070703
  5. ONON [Concomitant]
     Indication: NASAL CONGESTION
     Route: 048
     Dates: start: 20081201

REACTIONS (8)
  - ADRENAL INSUFFICIENCY [None]
  - ISOLATED ADRENOCORTICOTROPIC HORMONE DEFICIENCY [None]
  - HYPOPHYSITIS [None]
  - BLOOD CORTISOL DECREASED [None]
  - WEIGHT DECREASED [None]
  - DECREASED APPETITE [None]
  - PITUITARY ENLARGEMENT [None]
  - FATIGUE [None]
